FAERS Safety Report 24464021 (Version 1)
Quarter: 2024Q4

REPORT INFORMATION
  Report Type: Report from Study
  Country: US (occurrence: US)
  Receive Date: 20241018
  Receipt Date: 20241018
  Transmission Date: 20250115
  Serious: No
  Sender: ROCHE
  Company Number: US-ROCHE-3500643

PATIENT
  Age: 78 Year
  Sex: Male
  Weight: 88.2 kg

DRUGS (14)
  1. XOLAIR [Suspect]
     Active Substance: OMALIZUMAB
     Indication: Asthma
     Dosage: LAST DATE OF INJECTION: 28/DEC/2023, 30 DAYS SUPPLY, FOR 12 MONTHS
     Route: 058
  2. XOLAIR [Suspect]
     Active Substance: OMALIZUMAB
     Indication: Asthma
  3. ATENOLOL [Concomitant]
     Active Substance: ATENOLOL
  4. BENZONATATE [Concomitant]
     Active Substance: BENZONATATE
  5. DALIRESP [Concomitant]
     Active Substance: ROFLUMILAST
  6. IPRATROPIUM BROMIDE [Concomitant]
     Active Substance: IPRATROPIUM BROMIDE
  7. LEVOFLOXACIN [Concomitant]
     Active Substance: LEVOFLOXACIN
  8. LEVOTHYROXINE SODIUM [Concomitant]
     Active Substance: LEVOTHYROXINE SODIUM
  9. LOSARTAN POTASSIUM [Concomitant]
     Active Substance: LOSARTAN POTASSIUM
  10. MYRBETRIQ [Concomitant]
     Active Substance: MIRABEGRON
  11. OXYBUTYNIN CHLORIDE [Concomitant]
     Active Substance: OXYBUTYNIN CHLORIDE
  12. PREDNISONE [Concomitant]
     Active Substance: PREDNISONE
  13. SERTRALINE HYDROCHLORIDE [Concomitant]
     Active Substance: SERTRALINE HYDROCHLORIDE
  14. TRELEGY ELLIPTA [Concomitant]
     Active Substance: FLUTICASONE FUROATE\UMECLIDINIUM BROMIDE\VILANTEROL TRIFENATATE

REACTIONS (6)
  - Coronavirus infection [Unknown]
  - Breath sounds abnormal [Unknown]
  - Illness [Unknown]
  - Dysphonia [Unknown]
  - Aphonia [Unknown]
  - Upper respiratory tract congestion [Unknown]

NARRATIVE: CASE EVENT DATE: 20220127
